FAERS Safety Report 10250287 (Version 1)
Quarter: 2014Q2

REPORT INFORMATION
  Report Type: Spontaneous
  Country: US (occurrence: US)
  Receive Date: 20140620
  Receipt Date: 20140620
  Transmission Date: 20141212
  Serious: Yes (Other)
  Sender: FDA-Public Use
  Company Number: US-ACTELION-A-NJ2014-100692

PATIENT
  Age: 76 Year
  Sex: Female

DRUGS (12)
  1. OPSUMIT [Suspect]
     Indication: COR PULMONALE CHRONIC
     Dosage: 10 MG, UNK
     Route: 048
     Dates: start: 20140519
  2. VICODIN [Concomitant]
  3. VITAMIN B12 [Concomitant]
  4. ASPIRIN [Concomitant]
  5. VITAMIN D [Concomitant]
  6. CALTRATE [Concomitant]
  7. LEVOTHYROXINE [Concomitant]
  8. NIZATIDINE [Concomitant]
  9. DILTIAZEM [Concomitant]
  10. NEXIUM [Concomitant]
  11. LASIX [Concomitant]
  12. AMBIEN [Concomitant]

REACTIONS (2)
  - Pulmonary oedema [Recovering/Resolving]
  - Dyspnoea [Recovering/Resolving]
